FAERS Safety Report 8247095-5 (Version None)
Quarter: 2012Q1

REPORT INFORMATION
  Report Type: 
  Country: None (occurrence: None)
  Receive Date: 20120329
  Receipt Date: 20120329
  Transmission Date: 20120608
  Serious: Yes (Other)
  Sender: FDA-Public Use
  Company Number: None

PATIENT
  Sex: Male
  Weight: 106.5953 kg

DRUGS (6)
  1. WELCHOL [Concomitant]
  2. LISINOPRIL [Concomitant]
  3. BUMEX [Concomitant]
  4. OMEPRAZOLE [Suspect]
     Indication: BARRETT'S OESOPHAGUS
     Dosage: 20 MG DAILY ORAL
     Route: 048
     Dates: start: 20100628
  5. ALDACTONE [Concomitant]
  6. ACTOS [Concomitant]

REACTIONS (1)
  - NO THERAPEUTIC RESPONSE [None]
